FAERS Safety Report 10793375 (Version 1)
Quarter: 2015Q1

REPORT INFORMATION
  Report Type: Spontaneous
  Country: US (occurrence: US)
  Receive Date: 20150213
  Receipt Date: 20150213
  Transmission Date: 20150721
  Serious: Yes (Death, Hospitalization, Other)
  Sender: FDA-Public Use
  Company Number: CHPA2015US001800

PATIENT
  Age: 28 Year
  Sex: Male

DRUGS (3)
  1. DINITROPHENOL [Suspect]
     Active Substance: 2,4-DINITROPHENOL
     Dosage: 4 G, ONCE/SINGLE
     Route: 065
  2. DINITROPHENOL [Suspect]
     Active Substance: 2,4-DINITROPHENOL
     Indication: WEIGHT DECREASED
     Dosage: 200 MG, QD
     Route: 048
  3. DIPHENHYDRAMINE [Suspect]
     Active Substance: DIPHENHYDRAMINE
     Indication: PRODUCT USED FOR UNKNOWN INDICATION
     Dosage: UNK
     Route: 048

REACTIONS (8)
  - Completed suicide [Fatal]
  - Blood pressure increased [Unknown]
  - Toxicity to various agents [Fatal]
  - Somnolence [Unknown]
  - Heart rate increased [Unknown]
  - Hyperhidrosis [Unknown]
  - Cardiac arrest [Unknown]
  - Respiratory rate increased [Unknown]
